FAERS Safety Report 5765633-9 (Version None)
Quarter: 2008Q2

REPORT INFORMATION
  Report Type: 
  Country: None (occurrence: None)
  Receive Date: 20080611
  Receipt Date: 20080605
  Transmission Date: 20081010
  Serious: Yes (Other)
  Sender: FDA-Public Use
  Company Number: JP-AVENTIS-200810787JP

PATIENT
  Age: 25 Year
  Sex: Female
  Weight: 55 kg

DRUGS (9)
  1. ARAVA [Suspect]
     Indication: RHEUMATOID ARTHRITIS
     Route: 048
     Dates: start: 20071129, end: 20071201
  2. ARAVA [Suspect]
     Route: 048
     Dates: start: 20071202, end: 20071226
  3. ARAVA [Suspect]
     Route: 048
     Dates: start: 20071227, end: 20080304
  4. RHEUMATREX                         /00113801/ [Concomitant]
     Indication: RHEUMATOID ARTHRITIS
     Dosage: DOSE: 6 MG/WEEK
     Route: 048
     Dates: start: 20070404
  5. FOLIAMIN [Concomitant]
     Indication: PROPHYLAXIS
     Dosage: DOSE: 5 MG/WEEK
     Route: 048
  6. PREDNISOLONE [Concomitant]
     Indication: RHEUMATOID ARTHRITIS
     Route: 048
     Dates: end: 20080206
  7. PREDNISOLONE [Concomitant]
     Route: 048
     Dates: start: 20080207, end: 20080220
  8. PREDNISOLONE [Concomitant]
     Route: 048
     Dates: start: 20080221
  9. REMICADE [Concomitant]
     Indication: RHEUMATOID ARTHRITIS
     Dosage: DOSE: 200 MG/8 WEEKS
     Route: 041

REACTIONS (2)
  - ALANINE AMINOTRANSFERASE INCREASED [None]
  - ASPARTATE AMINOTRANSFERASE INCREASED [None]
